FAERS Safety Report 17285120 (Version 1)
Quarter: 2020Q1

REPORT INFORMATION
  Report Type: Spontaneous
  Country: US (occurrence: US)
  Receive Date: 20200117
  Receipt Date: 20200117
  Transmission Date: 20200409
  Serious: No
  Sender: FDA-Public Use
  Company Number: US-TARO-2018TAR00906

PATIENT
  Sex: Female

DRUGS (2)
  1. UNSPECIFIED MORNING AFTER PILL [Suspect]
     Active Substance: LEVONORGESTREL
  2. CLOTRIMAZOLE VAGINAL CREAM USP 1% 7 DAY [Suspect]
     Active Substance: CLOTRIMAZOLE

REACTIONS (1)
  - Vaginal discharge [Unknown]
